FAERS Safety Report 5286567-2 (Version None)
Quarter: 2007Q1

REPORT INFORMATION
  Report Type: 
  Country: None (occurrence: None)
  Receive Date: 20070116
  Receipt Date: 20061117
  Transmission Date: 20070707
  Serious: No
  Sender: FDA-Public Use
  Company Number: 2006SP004102

PATIENT
  Age: 54 Year
  Sex: Female
  Weight: 65.318 kg

DRUGS (6)
  1. LUNESTA [Suspect]
     Indication: INSOMNIA
     Dosage: 2 MG, HS, ORAL : 2MG, PRN, ORAL
     Route: 048
     Dates: start: 20061116
  2. LUNESTA [Suspect]
     Indication: INSOMNIA
     Dosage: 2 MG, HS, ORAL : 2MG, PRN, ORAL
     Route: 048
     Dates: start: 20061117
  3. LORAZEPAM [Concomitant]
  4. PEPCID [Concomitant]
  5. ETODOLAC [Concomitant]
  6. FLEXERIL [Concomitant]

REACTIONS (2)
  - DYSGEUSIA [None]
  - INITIAL INSOMNIA [None]
